FAERS Safety Report 8017447-7 (Version None)
Quarter: 2012Q1

REPORT INFORMATION
  Report Type: 
  Country: None (occurrence: None)
  Receive Date: 20120103
  Receipt Date: 20111226
  Transmission Date: 20120608
  Serious: Yes (Other)
  Sender: FDA-Public Use
  Company Number: MX-BRISTOL-MYERS SQUIBB COMPANY-16317364

PATIENT
  Age: 72 Year
  Sex: Female
  Weight: 68 kg

DRUGS (1)
  1. IRBESARTAN AND HYDROCHLOROTHIAZIDE [Suspect]
     Indication: HYPERTENSION
     Dosage: 1DF:1 TAB
     Route: 048
     Dates: start: 20090101

REACTIONS (4)
  - ARTHRALGIA [None]
  - OSTEOPOROSIS [None]
  - OSTEOARTHRITIS [None]
  - WEIGHT DECREASED [None]
